FAERS Safety Report 18949746 (Version 1)
Quarter: 2021Q1

REPORT INFORMATION
  Report Type: Spontaneous
  Country: US (occurrence: US)
  Receive Date: 20210227
  Receipt Date: 20210227
  Transmission Date: 20210420
  Serious: No
  Sender: FDA-Public Use
  Company Number: US-ROCHE-2610659

PATIENT

DRUGS (1)
  1. XOLAIR [Suspect]
     Active Substance: OMALIZUMAB
     Indication: CHRONIC SPONTANEOUS URTICARIA
     Dosage: 2 SEPARATE INJECTIONS ;ONGOING: YES
     Route: 058

REACTIONS (2)
  - Illness [Not Recovered/Not Resolved]
  - Urticaria [Not Recovered/Not Resolved]
